FAERS Safety Report 25958624 (Version 2)
Quarter: 2025Q4

REPORT INFORMATION
  Report Type: Spontaneous
  Country: EU (occurrence: EU)
  Receive Date: 20251024
  Receipt Date: 20251030
  Transmission Date: 20260117
  Serious: Yes (Hospitalization)
  Sender: MERCK SHARP & DOHME LLC
  Company Number: EU-009507513-2342485

PATIENT
  Age: 62 Year
  Sex: Male

DRUGS (4)
  1. DORAVIRINE [Suspect]
     Active Substance: DORAVIRINE
     Indication: HIV infection
     Route: 048
     Dates: start: 20210303, end: 20210318
  2. RALTEGRAVIR [Suspect]
     Active Substance: RALTEGRAVIR
     Indication: HIV infection
     Dates: start: 20210303, end: 20210318
  3. LANSOPRAZOLE [Suspect]
     Active Substance: LANSOPRAZOLE
     Dates: end: 20210310
  4. DOMPERIDONE [Suspect]
     Active Substance: DOMPERIDONE
     Dates: end: 20240308

REACTIONS (1)
  - Drug reaction with eosinophilia and systemic symptoms [Unknown]

NARRATIVE: CASE EVENT DATE: 20210317
